FAERS Safety Report 10904749 (Version 1)
Quarter: 2015Q1

REPORT INFORMATION
  Report Type: Spontaneous
  Country: US (occurrence: None)
  Receive Date: 20150107
  Receipt Date: 20150107
  Transmission Date: 20150721
  Serious: No
  Sender: FDA-Public Use
  Company Number: 2014TUS013614

PATIENT
  Age: 46 Year
  Sex: Female
  Weight: 61.7 kg

DRUGS (6)
  1. D SUPPLEMENT [Concomitant]
  2. CONTRAVE [Suspect]
     Active Substance: BUPROPION HYDROCHLORIDE\NALTREXONE HYDROCHLORIDE
     Indication: PRODUCT USED FOR UNKNOWN INDICATION
     Dosage: 1 TABLET, QD, ORAL
     Route: 048
     Dates: start: 201411, end: 20141123
  3. C SUPPLEMENT [Concomitant]
  4. ESTROGEN AND PROGESTERONE CREAM [Concomitant]
  5. MULTIVITAMIN /00097801/ (ASCORBIC ACID, CALCIUM PANTOTHENATE, ERGOCALCIFEROL, NICOTINAMIDE, PYRIDOXINE HYDROCHLORIDE, RETINOL, RIBOFLAVIN, THIAMINE HYDROCHLORIDE) [Concomitant]
  6. COQ10 /00517201/ (UBIDECARENONE) [Concomitant]

REACTIONS (2)
  - Abdominal pain upper [None]
  - Diarrhoea [None]
